FAERS Safety Report 13976318 (Version 1)
Quarter: 2017Q3

REPORT INFORMATION
  Report Type: Spontaneous
  Country: US (occurrence: US)
  Receive Date: 20170915
  Receipt Date: 20170915
  Transmission Date: 20171128
  Serious: No
  Sender: FDA-Public Use
  Company Number: US-PFIZER INC-2017399483

PATIENT
  Sex: Male

DRUGS (1)
  1. VIAGRA [Suspect]
     Active Substance: SILDENAFIL CITRATE
     Dosage: 150 MG, (CUT A PILL IN HALF AND TOOK 150 MG)

REACTIONS (3)
  - Drug ineffective [Unknown]
  - Cyanopsia [Unknown]
  - Intentional overdose [Unknown]
